FAERS Safety Report 6970160-7 (Version None)
Quarter: 2010Q3

REPORT INFORMATION
  Report Type: 
  Country: None (occurrence: None)
  Receive Date: 20100823
  Receipt Date: 20100617
  Transmission Date: 20110219
  Serious: No
  Sender: FDA-Public Use
  Company Number: 014547

PATIENT
  Sex: Female
  Weight: 58 kg

DRUGS (3)
  1. CIMZIA [Suspect]
     Indication: CROHN'S DISEASE
     Dosage: 400 MG 1X/4 WEEKS SUBCUTANEOUS
     Route: 058
     Dates: start: 20100501
  2. ENTOCORT EC [Concomitant]
  3. XIFAXAN [Concomitant]

REACTIONS (1)
  - NASOPHARYNGITIS [None]
